FAERS Safety Report 8998667 (Version 2)
Quarter: 2013Q1

REPORT INFORMATION
  Report Type: Spontaneous
  Country: JP (occurrence: JP)
  Receive Date: 20130103
  Receipt Date: 20130116
  Transmission Date: 20140127
  Serious: No
  Sender: FDA-Public Use
  Company Number: JP-ASTRAZENECA-2012SE95986

PATIENT
  Age: 48 Year
  Sex: Female

DRUGS (4)
  1. CRESTOR [Suspect]
     Indication: HYPERCHOLESTEROLAEMIA
     Route: 048
     Dates: start: 20121222, end: 20121224
  2. BLOPRESS [Concomitant]
     Route: 048
     Dates: start: 20041016
  3. SG [Concomitant]
     Route: 048
     Dates: start: 2004
  4. DEPAS [Concomitant]
     Route: 048
     Dates: start: 2004

REACTIONS (3)
  - Asthenia [Unknown]
  - Pruritus [Unknown]
  - Rash [Unknown]
